FAERS Safety Report 10182775 (Version 2)
Quarter: 2014Q2

REPORT INFORMATION
  Report Type: Spontaneous
  Country: US (occurrence: US)
  Receive Date: 20140520
  Receipt Date: 20140520
  Transmission Date: 20141212
  Serious: Yes (Other)
  Sender: FDA-Public Use
  Company Number: US-BAYER-2014-063376

PATIENT
  Sex: Female

DRUGS (1)
  1. SKYLA [Suspect]
     Dosage: 12 ?G/D, CONT
     Route: 015

REACTIONS (1)
  - Mastectomy [None]
